FAERS Safety Report 9511746 (Version 1)
Quarter: 2013Q3

REPORT INFORMATION
  Report Type: Spontaneous
  Country: US (occurrence: None)
  Receive Date: 20130909
  Receipt Date: 20130909
  Transmission Date: 20140515
  Serious: Yes (Disabling)
  Sender: FDA-Public Use
  Company Number: None

PATIENT
  Age: 59 Year
  Sex: Female
  Weight: 72.12 kg

DRUGS (6)
  1. CIPROFLOXACIN [Suspect]
     Indication: URINARY TRACT INFECTION
     Dosage: 1 PILL
     Route: 048
     Dates: start: 20130904, end: 20130905
  2. HCTZ [Concomitant]
  3. ACIPHEX [Concomitant]
  4. ZOLOFT [Concomitant]
  5. VITAMIN D [Concomitant]
  6. B COMPLEX VITAMINS [Concomitant]

REACTIONS (16)
  - Abnormal dreams [None]
  - Insomnia [None]
  - Vision blurred [None]
  - Skin burning sensation [None]
  - Pruritus [None]
  - Crying [None]
  - Suicidal ideation [None]
  - Joint swelling [None]
  - Weight bearing difficulty [None]
  - Back pain [None]
  - Flank pain [None]
  - Abdominal pain upper [None]
  - Blood pressure increased [None]
  - Drug hypersensitivity [None]
  - Tendon pain [None]
  - Tendonitis [None]
